FAERS Safety Report 25354971 (Version 7)
Quarter: 2025Q3

REPORT INFORMATION
  Report Type: Spontaneous
  Country: US (occurrence: US)
  Receive Date: 20250524
  Receipt Date: 20250717
  Transmission Date: 20251021
  Serious: No
  Sender: UNITED THERAPEUTICS
  Company Number: US-UNITED THERAPEUTICS-UNT-2025-017169

PATIENT
  Sex: Female
  Weight: 40.544 kg

DRUGS (21)
  1. REMODULIN [Suspect]
     Active Substance: TREPROSTINIL
     Indication: Pulmonary arterial hypertension
     Route: 041
  2. REMODULIN [Suspect]
     Active Substance: TREPROSTINIL
     Route: 041
  3. SOTATERCEPT [Suspect]
     Active Substance: SOTATERCEPT
     Indication: Product used for unknown indication
  4. SOTATERCEPT [Suspect]
     Active Substance: SOTATERCEPT
  5. GAVISCON [Concomitant]
     Active Substance: ALUMINUM HYDROXIDE\MAGNESIUM CARBONATE
     Indication: Product used for unknown indication
  6. IBUPROFEN [Concomitant]
     Active Substance: IBUPROFEN
     Indication: Product used for unknown indication
  7. TYLENOL [Concomitant]
     Active Substance: ACETAMINOPHEN
     Indication: Product used for unknown indication
  8. SODIUM CHLORIDE [Concomitant]
     Active Substance: SODIUM CHLORIDE
     Indication: Product used for unknown indication
  9. OPSUMIT [Concomitant]
     Active Substance: MACITENTAN
     Indication: Product used for unknown indication
  10. LASIX [Concomitant]
     Active Substance: FUROSEMIDE
     Indication: Product used for unknown indication
  11. ARNICA MONTANA FLOWER [Concomitant]
     Active Substance: ARNICA MONTANA FLOWER
     Indication: Product used for unknown indication
  12. SILDENAFIL [Concomitant]
     Active Substance: SILDENAFIL
     Indication: Product used for unknown indication
  13. VITAMIN D3 [Concomitant]
     Active Substance: CHOLECALCIFEROL
     Indication: Product used for unknown indication
  14. POTASSIUM CHLORIDE [Concomitant]
     Active Substance: POTASSIUM CHLORIDE
     Indication: Product used for unknown indication
  15. CHLORPHENIRAMINE MALEATE [Concomitant]
     Active Substance: CHLORPHENIRAMINE MALEATE
     Indication: Product used for unknown indication
  16. SPIRONOLACTONE [Concomitant]
     Active Substance: SPIRONOLACTONE
     Indication: Product used for unknown indication
  17. LIDOCAINE [Concomitant]
     Active Substance: LIDOCAINE
     Indication: Product used for unknown indication
  18. DIAZEPAM [Concomitant]
     Active Substance: DIAZEPAM
     Indication: Product used for unknown indication
  19. OXYGEN [Concomitant]
     Active Substance: OXYGEN
     Indication: Product used for unknown indication
  20. LORATADINE [Concomitant]
     Active Substance: LORATADINE
     Indication: Product used for unknown indication
  21. VITAMIN C [Concomitant]
     Active Substance: ASCORBIC ACID
     Indication: Product used for unknown indication

REACTIONS (26)
  - Seasonal allergy [Unknown]
  - Vomiting [Unknown]
  - Muscle spasms [Unknown]
  - Dyspnoea [Unknown]
  - Dizziness [Unknown]
  - Scar [Unknown]
  - Hypotension [Unknown]
  - Neck pain [Unknown]
  - Arthralgia [Unknown]
  - Cough [Unknown]
  - Muscle tightness [Unknown]
  - Throat irritation [Unknown]
  - Dysphagia [Unknown]
  - Postoperative adhesion [Unknown]
  - Tendonitis [Unknown]
  - Erythema [Unknown]
  - Flushing [Unknown]
  - Photosensitivity reaction [Unknown]
  - Fatigue [Unknown]
  - Pruritus [Unknown]
  - Rash [Unknown]
  - Sleep deficit [Unknown]
  - Headache [Unknown]
  - Diarrhoea [Unknown]
  - Chills [Unknown]
  - Device difficult to use [Unknown]

NARRATIVE: CASE EVENT DATE: 20240101
